FAERS Safety Report 6651704-1 (Version None)
Quarter: 2010Q1

REPORT INFORMATION
  Report Type: 
  Country: None (occurrence: None)
  Receive Date: 20100322
  Receipt Date: 20100304
  Transmission Date: 20100710
  Serious: Yes (Other)
  Sender: FDA-Public Use
  Company Number: DSA_42706_2010

PATIENT
  Age: 39 Year
  Sex: Female

DRUGS (8)
  1. BUPROPION HCL [Suspect]
     Indication: DEPRESSION
     Dosage: 150 MG, TOTAL DAILY ORAL , 150 MG, TOTAL DAILY DOSE ORAL
     Route: 048
     Dates: start: 20090101, end: 20091009
  2. BUPROPION HCL [Suspect]
     Indication: DEPRESSION
     Dosage: 150 MG, TOTAL DAILY ORAL , 150 MG, TOTAL DAILY DOSE ORAL
     Route: 048
     Dates: start: 20091201
  3. PROTAZIM-PROMETHAZINE [Concomitant]
  4. SSRI [Concomitant]
  5. ALEVENTA-VENLAFAXINE HYDROCHLORIDE [Concomitant]
  6. OXAZEPAM [Concomitant]
  7. GERODORM [Concomitant]
  8. ZOLPIDEM [Concomitant]

REACTIONS (4)
  - CAESAREAN SECTION [None]
  - DRUG EXPOSURE DURING PREGNANCY [None]
  - PRE-ECLAMPSIA [None]
  - PREMATURE BABY [None]
